FAERS Safety Report 14621047 (Version 2)
Quarter: 2018Q2

REPORT INFORMATION
  Report Type: Spontaneous
  Country: CN (occurrence: CN)
  Receive Date: 20180309
  Receipt Date: 20180504
  Transmission Date: 20180711
  Serious: Yes (Other)
  Sender: FDA-Public Use
  Company Number: CN-BAXTER-2018BAX007596

PATIENT

DRUGS (1)
  1. 5% GLUCOSE AND 0.2% SODIUM CHLORIDE INJECTION [Suspect]
     Active Substance: DEXTROSE\SODIUM CHLORIDE
     Indication: PRODUCT USED FOR UNKNOWN INDICATION
     Dosage: INFUSION
     Route: 065

REACTIONS (3)
  - Product quality issue [Unknown]
  - Drug administration error [Unknown]
  - Air embolism [Recovering/Resolving]

NARRATIVE: CASE EVENT DATE: 20180226
